FAERS Safety Report 16287379 (Version 3)
Quarter: 2019Q4

REPORT INFORMATION
  Report Type: Report from Study
  Country: US (occurrence: US)
  Receive Date: 20190508
  Receipt Date: 20191004
  Transmission Date: 20200122
  Serious: Yes (Hospitalization)
  Sender: FDA-Public Use
  Company Number: US-IPSEN BIOPHARMACEUTICALS, INC.-2019-07303

PATIENT
  Age: 73 Year
  Sex: Female
  Weight: 69.9 kg

DRUGS (37)
  1. LEUCOVORIN. [Suspect]
     Active Substance: LEUCOVORIN
     Dates: start: 20190926, end: 20190926
  2. HYDROCORTISONE. [Concomitant]
     Active Substance: HYDROCORTISONE
     Indication: ECZEMA
     Route: 061
     Dates: start: 20190509
  3. POLYETHYLENE GLYCOL [Concomitant]
     Active Substance: POLYETHYLENE GLYCOLS
     Indication: CONSTIPATION
     Dosage: AS NEEDED
     Route: 048
     Dates: start: 20190509
  4. LEUCOVORIN. [Suspect]
     Active Substance: LEUCOVORIN
     Indication: ADENOCARCINOMA PANCREAS
     Dates: start: 20190307, end: 20190321
  5. ABRAX [Concomitant]
     Dates: start: 20190214, end: 20190214
  6. CLOBETASOL [Concomitant]
     Active Substance: CLOBETASOL
     Indication: ECZEMA
     Dosage: PRN
     Route: 061
  7. VITAMIN D3 [Concomitant]
     Active Substance: CHOLECALCIFEROL
     Indication: NUTRITIONAL SUPPLEMENTATION
     Route: 048
     Dates: start: 20190509
  8. ONDANSETRON [Concomitant]
     Active Substance: ONDANSETRON
     Indication: VOMITING
  9. ONIVYDE [Suspect]
     Active Substance: IRINOTECAN HYDROCHLORIDE
     Indication: ADENOCARCINOMA PANCREAS
     Dosage: 70 MG/M2 X BSA X 100%= 135 MG IV IN 500 ML SODIUM CHLORIDE 0.9% OVER 90 MINUTES
     Route: 042
     Dates: start: 20190307
  10. 5 FU [Suspect]
     Active Substance: FLUOROURACIL
     Indication: ADENOCARCINOMA PANCREAS
     Dates: start: 20190307, end: 20190321
  11. MULTIVITAMINS [Concomitant]
     Active Substance: VITAMINS
     Indication: NUTRITIONAL SUPPLEMENTATION
     Route: 048
     Dates: start: 20190509
  12. 5 FU [Suspect]
     Active Substance: FLUOROURACIL
     Route: 042
     Dates: start: 20190905, end: 20190907
  13. ABRAX [Concomitant]
     Dates: start: 20190221, end: 20190221
  14. ESTRADIOL. [Concomitant]
     Active Substance: ESTRADIOL
     Indication: MENOPAUSE
     Dates: start: 20190509
  15. LORAZEPAM. [Concomitant]
     Active Substance: LORAZEPAM
     Indication: INSOMNIA
     Route: 048
     Dates: start: 20190509
  16. ONIVYDE [Suspect]
     Active Substance: IRINOTECAN HYDROCHLORIDE
     Route: 042
     Dates: start: 20190905
  17. ATORVASTATIN [Concomitant]
     Active Substance: ATORVASTATIN
     Indication: BLOOD CHOLESTEROL
     Dates: start: 20190509
  18. NYSTATIN SUSPENSION [Concomitant]
     Active Substance: NYSTATIN
     Indication: STOMATITIS
     Dosage: 100 K U/ML PRN
     Route: 061
  19. ONDANSETRON [Concomitant]
     Active Substance: ONDANSETRON
     Indication: NAUSEA
     Dosage: AS REQUIRED
     Route: 048
     Dates: start: 20190509
  20. DRONABINOL. [Concomitant]
     Active Substance: DRONABINOL
     Indication: INCREASED APPETITE
  21. DOCUSATE SODIUM. [Concomitant]
     Active Substance: DOCUSATE SODIUM
     Indication: FAECES SOFT
     Dosage: AS NEEDED FOR CONSTIPATION
     Dates: start: 20190509
  22. DULOXETINE. [Concomitant]
     Active Substance: DULOXETINE
     Dosage: 30 CAP., 3 REFILLS
     Route: 048
  23. OXYCODONE [Concomitant]
     Active Substance: OXYCODONE
     Indication: PAIN
     Dosage: AS NEEDED
     Route: 048
     Dates: start: 20190509
  24. ONIVYDE [Suspect]
     Active Substance: IRINOTECAN HYDROCHLORIDE
     Dosage: 70 MG/M2 X BSA X 100 PERCENT= 135 MG IV IN 500 ML SODIUM CHLORIDE 0.9 PERCENT OVER 90 MINUTES
     Route: 042
     Dates: start: 20190321
  25. ONIVYDE [Suspect]
     Active Substance: IRINOTECAN HYDROCHLORIDE
     Route: 042
     Dates: start: 20190926
  26. ABRAX [Concomitant]
     Dates: start: 20190207, end: 20190207
  27. HYDROCHLOROTHIAZIDE. [Concomitant]
     Active Substance: HYDROCHLOROTHIAZIDE
     Indication: HYPERTENSION
  28. HYDROCHLOROTHIAZIDE. [Concomitant]
     Active Substance: HYDROCHLOROTHIAZIDE
     Indication: BLOOD PRESSURE INCREASED
  29. PANCRELIPASE. [Concomitant]
     Active Substance: PANCRELIPASE
     Dosage: 126000 UNITS - 168000 UNITS; ORAL DELAYED RELEASE CAPSULE
  30. 5 FU [Suspect]
     Active Substance: FLUOROURACIL
     Route: 042
     Dates: start: 20190926, end: 20190928
  31. LEUCOVORIN. [Suspect]
     Active Substance: LEUCOVORIN
     Dates: start: 20190905
  32. LISINOPRIL. [Concomitant]
     Active Substance: LISINOPRIL
     Dosage: 2 X 10 MG
  33. MELOXICAM. [Concomitant]
     Active Substance: MELOXICAM
     Indication: ARTHRITIS
     Route: 048
  34. ASPIRIN. [Concomitant]
     Active Substance: ASPIRIN
     Route: 048
     Dates: start: 20190519
  35. PROOMEGA [Concomitant]
     Indication: DRY EYE
     Dosage: 1125 EPA/875 DHA
  36. OMEGA-3 ACIDS [Concomitant]
     Active Substance: OMEGA-3 FATTY ACIDS
     Dates: start: 20190509
  37. PANTOPRAZOLE [Concomitant]
     Active Substance: PANTOPRAZOLE
     Route: 048
     Dates: start: 20190509

REACTIONS (17)
  - Abdominal pain upper [Recovered/Resolved]
  - Back pain [Recovered/Resolved]
  - Back pain [Recovered/Resolved]
  - Nausea [Recovered/Resolved]
  - Syncope [Unknown]
  - Abdominal pain [Unknown]
  - Abdominal pain upper [Recovered/Resolved]
  - Diarrhoea [Recovering/Resolving]
  - Nausea [Recovered/Resolved]
  - Diarrhoea [Recovered/Resolved]
  - Nausea [Recovering/Resolving]
  - Vomiting [Recovered/Resolved]
  - Fatigue [Unknown]
  - Nausea [Unknown]
  - Vomiting [Unknown]
  - Diarrhoea [Recovered/Resolved]
  - Vomiting [Recovering/Resolving]

NARRATIVE: CASE EVENT DATE: 20190430
